FAERS Safety Report 8388990-6 (Version None)
Quarter: 2012Q2

REPORT INFORMATION
  Report Type: 
  Country: None (occurrence: None)
  Receive Date: 20120528
  Receipt Date: 20120523
  Transmission Date: 20120825
  Serious: No
  Sender: FDA-Public Use
  Company Number: US-PFIZER INC-2012124898

PATIENT
  Sex: Male

DRUGS (2)
  1. NEURONTIN [Suspect]
     Dosage: 2/300 MG TABLET PER DAY
  2. NEURONTIN [Suspect]
     Dosage: 6/100 MG PER DAY

REACTIONS (1)
  - SOMNOLENCE [None]
